FAERS Safety Report 7460962-5 (Version None)
Quarter: 2011Q2

REPORT INFORMATION
  Report Type: 
  Country: None (occurrence: None)
  Receive Date: 20110505
  Receipt Date: 20110308
  Transmission Date: 20111010
  Serious: Yes (Hospitalization)
  Sender: FDA-Public Use
  Company Number: JP-BAXTER-2011BH005316

PATIENT
  Age: 75 Year
  Sex: Male

DRUGS (2)
  1. DIANEAL PD-2 W/ DEXTROSE 1.5% [Suspect]
     Indication: DIABETIC NEPHROPATHY
     Route: 033
  2. EXTRANEAL [Suspect]
     Indication: DIABETIC NEPHROPATHY
     Route: 033

REACTIONS (5)
  - SENSE OF OPPRESSION [None]
  - URINE OUTPUT DECREASED [None]
  - FLUID RETENTION [None]
  - RENAL IMPAIRMENT [None]
  - CONDITION AGGRAVATED [None]
